FAERS Safety Report 8396667-6 (Version None)
Quarter: 2012Q1

REPORT INFORMATION
  Report Type: 
  Country: None (occurrence: None)
  Receive Date: 20120323
  Receipt Date: 20110712
  Transmission Date: 20120608
  Serious: Yes (Hospitalization)
  Sender: FDA-Public Use
  Company Number: 163-21880-11071275

PATIENT
  Age: 69 Year
  Sex: Male
  Weight: 68.9467 kg

DRUGS (12)
  1. CRESTOR [Concomitant]
  2. ZETIA [Concomitant]
  3. REVLIMID [Suspect]
     Indication: MULTIPLE MYELOMA
     Dosage: 15 MG, 1 IN 1 D, PO, 25 MG, DAILY X 21 DAYS, PO, 15 MG, 1 IN 1 D, PO
     Route: 048
     Dates: start: 20110301
  4. REVLIMID [Suspect]
     Indication: MULTIPLE MYELOMA
     Dosage: 15 MG, 1 IN 1 D, PO, 25 MG, DAILY X 21 DAYS, PO, 15 MG, 1 IN 1 D, PO
     Route: 048
     Dates: start: 20110501
  5. REVLIMID [Suspect]
     Indication: MULTIPLE MYELOMA
     Dosage: 15 MG, 1 IN 1 D, PO, 25 MG, DAILY X 21 DAYS, PO, 15 MG, 1 IN 1 D, PO
     Route: 048
     Dates: start: 20110208
  6. SERTRALINE HYDROCHLORIDE [Concomitant]
  7. MIRALAX [Concomitant]
  8. VITAMIN D [Concomitant]
  9. AMLODIPINE [Concomitant]
  10. DEXAMETHASONE [Concomitant]
  11. ASPIRIN [Concomitant]
  12. ACYCLOVIR [Concomitant]

REACTIONS (1)
  - DEHYDRATION [None]
